FAERS Safety Report 5113453-0 (Version None)
Quarter: 2006Q3

REPORT INFORMATION
  Report Type: 
  Country: None (occurrence: None)
  Receive Date: 20060920
  Receipt Date: 20060914
  Transmission Date: 20061208
  Serious: Yes (Hospitalization)
  Sender: FDA-Public Use
  Company Number: 129-CTHAL-05060166

PATIENT
  Age: 75 Year
  Sex: Female
  Weight: 79 kg

DRUGS (11)
  1. THALIDOMIDE(THALIDOMIDE) (CAPSULES) [Suspect]
     Indication: MULTIPLE MYELOMA
     Dosage: 200 MG, DAILY, ORAL
     Route: 048
     Dates: start: 20050406, end: 20050606
  2. DEXAMETHASONE TAB [Suspect]
     Indication: MULTIPLE MYELOMA
     Dosage: 40 MG, ORAL
     Route: 048
     Dates: start: 20050406, end: 20050606
  3. OXYCARDIL (DILTIAZEM) [Concomitant]
  4. ZOCOR [Concomitant]
  5. KETONAL (KETOPROFEN) [Concomitant]
  6. CIPROFLOXACIN [Concomitant]
  7. PYRIDOXINE HCL [Concomitant]
  8. FLUCONAZOLE [Concomitant]
  9. SPIRONOLACTONE [Concomitant]
  10. FUROSEMIDE [Concomitant]
  11. OMEPRAZOLE [Concomitant]

REACTIONS (4)
  - ATRIAL FIBRILLATION [None]
  - DEHYDRATION [None]
  - DIABETIC HYPERGLYCAEMIC COMA [None]
  - RENAL FAILURE [None]
